FAERS Safety Report 24291898 (Version 1)
Quarter: 2024Q3

REPORT INFORMATION
  Report Type: Spontaneous
  Country: US (occurrence: None)
  Receive Date: 20240906
  Receipt Date: 20240906
  Transmission Date: 20241017
  Serious: Yes (Other)
  Sender: Public
  Company Number: None

PATIENT
  Age: 24 Year
  Sex: Female
  Weight: 63 kg

DRUGS (1)
  1. COSENTYX [Suspect]
     Active Substance: SECUKINUMAB
     Indication: Psoriasis
     Dosage: 2 ML 4 WEEKS SUBCUTANEOUS ?
     Route: 058
     Dates: start: 20230918

REACTIONS (2)
  - Irritable bowel syndrome [None]
  - Oligomenorrhoea [None]

NARRATIVE: CASE EVENT DATE: 20240325
